FAERS Safety Report 10404181 (Version 1)
Quarter: 2014Q1

REPORT INFORMATION
  Report Type: Spontaneous
  Country: US (occurrence: None)
  Receive Date: 20131226
  Receipt Date: 20131226
  Transmission Date: 20141002
  Serious: Yes (Hospitalization)
  Sender: FDA-Public Use
  Company Number: PHEH2012US002216

PATIENT
  Age: 5 Year
  Sex: Female

DRUGS (7)
  1. AFINITOR (RAD) UNKNOWN [Suspect]
     Indication: BRAIN NEOPLASM BENIGN
     Route: 048
     Dates: start: 20120121, end: 20120201
  2. TRILEPTAL (OXCARBAZEPINE) [Concomitant]
  3. AMLODIPINE (AMLODIPINE) [Concomitant]
  4. DIASTAT (DIAZEPAM) (5 MILLIGRAM, GEL) (DIAZEPAM) [Concomitant]
  5. ENALAPRIL (ENALAPRIL) [Concomitant]
  6. LYSINE (LYSINE) [Concomitant]
  7. KEPPRA (LEVETIRACETAM) [Concomitant]

REACTIONS (10)
  - Convulsion [None]
  - Stomatitis [None]
  - Ear infection [None]
  - Productive cough [None]
  - Pyrexia [None]
  - Abdominal pain upper [None]
  - Nasopharyngitis [None]
  - Insomnia [None]
  - Sneezing [None]
  - Rhinorrhoea [None]
